FAERS Safety Report 8896341 (Version 1)
Quarter: 2012Q4

REPORT INFORMATION
  Report Type: 
  Country: US (occurrence: None)
  Receive Date: 20121102
  Receipt Date: 20121102
  Transmission Date: 20130627
  Serious: Yes (Death)
  Sender: FDA-Public Use
  Company Number: ACET20120024

PATIENT
  Age: 54 Year
  Sex: Female
  Weight: 36.2 kg

DRUGS (1)
  1. Q-PAP TABLETS 325MG (PARACETAMOL) (TABLETS) [Suspect]
     Indication: DRUG ABUSE
     Dosage: UNKNOWN,UNKNOWN,  Oral
     Route: 048

REACTIONS (3)
  - Metabolic acidosis [None]
  - Multi-organ failure [None]
  - Mental status changes [None]
